FAERS Safety Report 11665122 (Version 1)
Quarter: 2015Q4

REPORT INFORMATION
  Report Type: Spontaneous
  Country: US (occurrence: US)
  Receive Date: 20151027
  Receipt Date: 20151027
  Transmission Date: 20160304
  Serious: No
  Sender: FDA-Public Use
  Company Number: US-HORIZON-RAV-0097-2015

PATIENT
  Age: 4 Year
  Sex: Female

DRUGS (1)
  1. RAVICTI [Suspect]
     Active Substance: GLYCEROL PHENYLBUTYRATE
     Indication: ARGININOSUCCINATE SYNTHETASE DEFICIENCY
     Dosage: 13.2 ML FOUR TIMES DAILY
     Dates: start: 201506

REACTIONS (3)
  - Pyrexia [Unknown]
  - Off label use [Unknown]
  - Nasopharyngitis [Unknown]
